FAERS Safety Report 4725888-6 (Version None)
Quarter: 2005Q3

REPORT INFORMATION
  Report Type: 
  Country: None (occurrence: None)
  Receive Date: 20050726
  Receipt Date: 20050726
  Transmission Date: 20060218
  Serious: Yes (Hospitalization)
  Sender: FDA-Public Use
  Company Number: None

PATIENT
  Age: 79 Year
  Sex: Male
  Weight: 97.478 kg

DRUGS (4)
  1. DURAGESIC-100 [Suspect]
     Indication: ACCIDENTAL OVERDOSE
  2. DURAGESIC-100 [Suspect]
     Indication: DEHYDRATION
  3. CODEINE ELIXIR [Suspect]
  4. NARCAN [Concomitant]

REACTIONS (2)
  - ACCIDENTAL OVERDOSE [None]
  - WRONG DRUG ADMINISTERED [None]
